FAERS Safety Report 8125689-5 (Version None)
Quarter: 2012Q1

REPORT INFORMATION
  Report Type: 
  Country: None (occurrence: None)
  Receive Date: 20120209
  Receipt Date: 20120131
  Transmission Date: 20120608
  Serious: Yes (Death, Hospitalization)
  Sender: FDA-Public Use
  Company Number: JP-TEVA-2011002044

PATIENT
  Sex: Female
  Weight: 52 kg

DRUGS (23)
  1. VALACYCLOVIR HYDROCHLORIDE [Concomitant]
  2. SODIUM PICOSULFATE [Concomitant]
  3. PENTAMIDINE [Concomitant]
     Dates: start: 20110402, end: 20110402
  4. HEPARIN [Concomitant]
  5. HYDROCORTISONE BUTYRATE [Concomitant]
     Dates: start: 20110119
  6. OMEPRAZOLE [Concomitant]
     Dates: end: 20110428
  7. CALCIUM POLYSTYRENE SULFONATE [Concomitant]
     Dates: start: 20110122
  8. CEFAZOLIN [Concomitant]
     Dates: start: 20110308, end: 20110408
  9. BENDAMUSTINE [Suspect]
     Indication: B-CELL LYMPHOMA
     Route: 042
     Dates: start: 20110118, end: 20110119
  10. SULFAMETHOXAZOLE AND TRIMETHOPRIM [Concomitant]
  11. REBAMIPIDE [Concomitant]
  12. BROTIZOLAM [Concomitant]
     Dates: end: 20110319
  13. VERAPAMIL HYDROCHLOIRDE [Concomitant]
     Dates: start: 20110224, end: 20110224
  14. VALACYCLOVIR HYDROCHLORIDE [Concomitant]
  15. MAGNESIUM OXIDE [Concomitant]
     Dates: start: 20110119
  16. PREDNISOLONE [Concomitant]
     Dates: start: 20110216, end: 20110428
  17. DIGOXIN [Concomitant]
     Dates: start: 20110224, end: 20110428
  18. BENDAMUSTINE [Suspect]
     Route: 042
     Dates: start: 20110302, end: 20110303
  19. DEXAMETHASONE [Concomitant]
  20. FLUCONAZOLE [Concomitant]
     Dates: start: 20110402, end: 20110428
  21. OXYCODONE HYDROCHLORIDE [Suspect]
     Indication: CANCER PAIN
     Dates: start: 20110216, end: 20110428
  22. GRANISETRON HYDROCHLORIDE [Concomitant]
     Dates: start: 20110118
  23. VALACYCLOVIR HYDROCHLORIDE [Concomitant]

REACTIONS (8)
  - LYMPHOMA [None]
  - PLATELET COUNT DECREASED [None]
  - LYMPHOCYTE COUNT DECREASED [None]
  - DISEASE PROGRESSION [None]
  - NEUTROPHIL COUNT DECREASED [None]
  - NEUTROPENIA [None]
  - LYMPHOPENIA [None]
  - B-CELL LYMPHOMA [None]
